FAERS Safety Report 5894746-6 (Version None)
Quarter: 2008Q3

REPORT INFORMATION
  Report Type: 
  Country: None (occurrence: None)
  Receive Date: 20080924
  Receipt Date: 20080611
  Transmission Date: 20090109
  Serious: No
  Sender: FDA-Public Use
  Company Number: US-ASTRAZENECA-2008UW11678

PATIENT
  Age: 48 Year
  Sex: Male
  Weight: 93 kg

DRUGS (5)
  1. SEROQUEL [Suspect]
     Indication: BIPOLAR DISORDER
     Dosage: 25 MG AT BEDTIME GRADUALLY INCREASED TO 100 MG AT BEDTIME
     Route: 048
  2. HYDROXYZINE [Concomitant]
  3. METFORMIN HCL [Concomitant]
  4. PROPRANOLOL [Concomitant]
  5. MELATONIN [Concomitant]

REACTIONS (3)
  - BACK PAIN [None]
  - SLUGGISHNESS [None]
  - TYPE 2 DIABETES MELLITUS [None]
